FAERS Safety Report 8151033-3 (Version None)
Quarter: 2012Q1

REPORT INFORMATION
  Report Type: 
  Country: None (occurrence: None)
  Receive Date: 20120220
  Receipt Date: 20120216
  Transmission Date: 20120608
  Serious: Yes (Hospitalization, Disabling)
  Sender: FDA-Public Use
  Company Number: US-MERCK-1107USA03281

PATIENT
  Age: 69 Year
  Sex: Female

DRUGS (3)
  1. FOSAMAX [Suspect]
     Indication: OSTEOPOROSIS
     Route: 048
     Dates: start: 20020101, end: 20080201
  2. NEXIUM [Concomitant]
     Indication: GASTROOESOPHAGEAL REFLUX DISEASE
     Route: 065
     Dates: start: 19950101
  3. FOSAMAX [Suspect]
     Route: 048
     Dates: start: 20080201, end: 20080601

REACTIONS (8)
  - THYROID DISORDER [None]
  - DEVICE FAILURE [None]
  - FEMUR FRACTURE [None]
  - HYPOTHYROIDISM [None]
  - FRACTURE NONUNION [None]
  - LOW TURNOVER OSTEOPATHY [None]
  - BLOOD CHOLESTEROL INCREASED [None]
  - VITAMIN D DEFICIENCY [None]
